FAERS Safety Report 21450140 (Version 1)
Quarter: 2022Q4

REPORT INFORMATION
  Report Type: Spontaneous
  Country: US (occurrence: US)
  Receive Date: 20221013
  Receipt Date: 20221013
  Transmission Date: 20230113
  Serious: No
  Sender: FDA-Public Use
  Company Number: US-CIPLA LTD.-2022US05235

PATIENT
  Age: 12 Year
  Sex: Male

DRUGS (1)
  1. ALBUTEROL [Suspect]
     Active Substance: ALBUTEROL
     Indication: Asthma
     Dosage: 0.18 MILLIGRAM, TID (2 PUFFS TID)
     Route: 048
     Dates: start: 202208

REACTIONS (7)
  - Incorrect dose administered by device [Unknown]
  - Device difficult to use [Unknown]
  - Device delivery system issue [Unknown]
  - Product taste abnormal [Unknown]
  - Device malfunction [Unknown]
  - Product cleaning inadequate [Unknown]
  - Device defective [Unknown]

NARRATIVE: CASE EVENT DATE: 20220822
